FAERS Safety Report 7871332-X (Version None)
Quarter: 2011Q4

REPORT INFORMATION
  Report Type: 
  Country: None (occurrence: None)
  Receive Date: 20111029
  Receipt Date: 20110301
  Transmission Date: 20120403
  Serious: No
  Sender: FDA-Public Use
  Company Number: US-AMGEN-USASP2010010575

PATIENT
  Age: 44 Year
  Sex: Male

DRUGS (11)
  1. NEURONTIN [Concomitant]
     Dosage: 900 MG, TID
  2. VICODIN [Concomitant]
  3. ENBREL [Suspect]
     Indication: PSORIATIC ARTHROPATHY
     Dosage: 50 MG, QWK
     Dates: start: 20101209
  4. PRAMIPEXOLE DIHYDROCHLORIDE [Concomitant]
  5. LEVOTHYROXINE SODIUM [Concomitant]
     Dosage: 112 UNK, UNK
  6. LORATADINE [Concomitant]
  7. CRESTOR [Concomitant]
     Dosage: 20 MG, UNK
  8. ZOLPIDEM [Concomitant]
     Dosage: 10 MG, UNK
  9. ALBUTEROL [Concomitant]
  10. ASPIRIN [Concomitant]
     Dosage: 81 MG, UNK
  11. ADVAIR DISKUS 100/50 [Concomitant]

REACTIONS (2)
  - ARTHRALGIA [None]
  - JOINT SWELLING [None]
